FAERS Safety Report 16594766 (Version 1)
Quarter: 2019Q3

REPORT INFORMATION
  Report Type: Other
  Country: US (occurrence: US)
  Receive Date: 20190718
  Receipt Date: 20190718
  Transmission Date: 20191004
  Serious: No
  Sender: FDA-Public Use
  Company Number: US-SWEDISH ORPHAN BIOVITRUM-2019US0309

PATIENT
  Sex: Female

DRUGS (3)
  1. PREDNISONE. [Concomitant]
     Active Substance: PREDNISONE
  2. NAPROXEN. [Concomitant]
     Active Substance: NAPROXEN
  3. KINERET [Suspect]
     Active Substance: ANAKINRA
     Dosage: DAILY
     Route: 058
     Dates: start: 20190126

REACTIONS (3)
  - Diarrhoea [Unknown]
  - Injection site pruritus [Recovering/Resolving]
  - Injection site urticaria [Unknown]
